FAERS Safety Report 9559373 (Version 1)
Quarter: 2013Q3

REPORT INFORMATION
  Report Type: Spontaneous
  Country: US (occurrence: None)
  Receive Date: 20130913
  Receipt Date: 20130913
  Transmission Date: 20140515
  Serious: No
  Sender: FDA-Public Use
  Company Number: 1000044439

PATIENT
  Age: 75 Year
  Sex: Male

DRUGS (1)
  1. DALIRESP (ROFLUMILAST) (500 MICROGRAM, TABLETS) [Suspect]
     Indication: CHRONIC OBSTRUCTIVE PULMONARY DISEASE
     Route: 048
     Dates: start: 20130409, end: 20130415

REACTIONS (5)
  - Arthralgia [None]
  - Back pain [None]
  - Diarrhoea [None]
  - Headache [None]
  - Epistaxis [None]
